FAERS Safety Report 5523355-3 (Version None)
Quarter: 2007Q4

REPORT INFORMATION
  Report Type: 
  Country: None (occurrence: None)
  Receive Date: 20071121
  Receipt Date: 20071114
  Transmission Date: 20080405
  Serious: Yes (Other)
  Sender: FDA-Public Use
  Company Number: B0492654A

PATIENT
  Age: 39 Year
  Sex: Female

DRUGS (1)
  1. LAMICTAL [Suspect]
     Dates: start: 20071017, end: 20071023

REACTIONS (8)
  - COUGH [None]
  - DYSGEUSIA [None]
  - EYE IRRITATION [None]
  - FLUID RETENTION [None]
  - PARAESTHESIA [None]
  - RASH [None]
  - SKIN DISCOLOURATION [None]
  - TREMOR [None]
